FAERS Safety Report 8543913-1 (Version None)
Quarter: 2012Q3

REPORT INFORMATION
  Report Type: 
  Country: None (occurrence: None)
  Receive Date: 20120727
  Receipt Date: 20120707
  Transmission Date: 20120928
  Serious: No
  Sender: FDA-Public Use
  Company Number: US-009507513-1207USA007910

PATIENT

DRUGS (4)
  1. CLARITIN REDITABS [Suspect]
     Indication: SNEEZING
     Dosage: 20 MG, ONCE
     Route: 048
     Dates: start: 20120707
  2. PRAVASTATIN SODIUM [Concomitant]
     Indication: PRODUCT USED FOR UNKNOWN INDICATION
     Dosage: 4 MG, QD
     Route: 048
  3. TERAZOSIN HCL [Concomitant]
     Indication: PRODUCT USED FOR UNKNOWN INDICATION
     Dosage: 5 MG, QD
     Route: 048
  4. CLARITIN REDITABS [Suspect]
     Indication: RHINORRHOEA
     Dosage: 10 MG, QD
     Route: 048

REACTIONS (2)
  - NO ADVERSE EVENT [None]
  - OVERDOSE [None]
